FAERS Safety Report 9451941 (Version 1)
Quarter: 2013Q3

REPORT INFORMATION
  Report Type: Spontaneous
  Country: US (occurrence: US)
  Receive Date: 20130812
  Receipt Date: 20130812
  Transmission Date: 20140515
  Serious: No
  Sender: FDA-Public Use
  Company Number: US-BIOGENIDEC-2013BI072794

PATIENT
  Age: 45 Year
  Sex: Female

DRUGS (1)
  1. TYSABRI [Suspect]
     Indication: MULTIPLE SCLEROSIS
     Route: 042
     Dates: start: 20120914

REACTIONS (6)
  - Helicobacter infection [Unknown]
  - Abdominal pain upper [Unknown]
  - Oesophagitis [Unknown]
  - Gastritis [Unknown]
  - Peptic ulcer [Unknown]
  - Chest pain [Unknown]
